FAERS Safety Report 5821467-8 (Version None)
Quarter: 2008Q3

REPORT INFORMATION
  Report Type: 
  Country: None (occurrence: None)
  Receive Date: 20080724
  Receipt Date: 20080718
  Transmission Date: 20090109
  Serious: Yes (Hospitalization, Other)
  Sender: FDA-Public Use
  Company Number: B0528440A

PATIENT
  Age: 17 Year
  Sex: Female

DRUGS (5)
  1. VALTREX [Suspect]
     Indication: HERPES ZOSTER
     Route: 048
     Dates: start: 20080521, end: 20080522
  2. CERAZETTE [Suspect]
     Indication: CONTRACEPTION
     Dosage: 75UG PER DAY
     Route: 048
     Dates: start: 20070101, end: 20080501
  3. LOETTE [Suspect]
     Indication: CONTRACEPTION
     Dosage: 120UG PER DAY
     Route: 048
     Dates: start: 20030101, end: 20070101
  4. TRIONETTA [Suspect]
     Indication: CONTRACEPTION
     Route: 048
     Dates: start: 20030101, end: 20030101
  5. YASMIN [Suspect]
     Indication: CONTRACEPTION
     Route: 048
     Dates: start: 20030101, end: 20030101

REACTIONS (14)
  - FOCAL NODULAR HYPERPLASIA [None]
  - GENITAL HAEMORRHAGE [None]
  - HAEMATEMESIS [None]
  - HEPATIC NEOPLASM [None]
  - NAUSEA [None]
  - OEDEMATOUS PANCREATITIS [None]
  - PANCREATITIS [None]
  - PORTAL HYPERTENSION [None]
  - PORTAL VEIN THROMBOSIS [None]
  - SPLENIC INFARCTION [None]
  - SPLENIC VEIN THROMBOSIS [None]
  - SPLENOMEGALY [None]
  - VARICES OESOPHAGEAL [None]
  - VOMITING [None]
